FAERS Safety Report 9257692 (Version 1)
Quarter: 2013Q2

REPORT INFORMATION
  Report Type: Spontaneous
  Country: NL (occurrence: NL)
  Receive Date: 20130426
  Receipt Date: 20130426
  Transmission Date: 20140414
  Serious: Yes (Hospitalization)
  Sender: FDA-Public Use
  Company Number: NL-AMGEN-NLDSP2013028278

PATIENT
  Age: 92 Year
  Sex: Female

DRUGS (7)
  1. ARANESP [Suspect]
     Indication: PRODUCT USED FOR UNKNOWN INDICATION
     Dosage: 100 MUG, Q2WK
     Route: 058
  2. BUMETANIDE [Concomitant]
  3. SIFROL [Concomitant]
  4. PANTOPRAZOL [Concomitant]
  5. BISOPROLOL [Concomitant]
  6. ACENOCOUMAROL [Concomitant]
  7. ETALPHA [Concomitant]

REACTIONS (1)
  - Oedema [Unknown]
